FAERS Safety Report 24724216 (Version 1)
Quarter: 2024Q4

REPORT INFORMATION
  Report Type: Spontaneous
  Country: US (occurrence: US)
  Receive Date: 20241211
  Receipt Date: 20241211
  Transmission Date: 20250115
  Serious: Yes (Hospitalization, Other)
  Sender: CSL BEHRING
  Company Number: US-BEH-2024187136

PATIENT
  Age: 44 Year
  Sex: Male

DRUGS (1)
  1. PRIVIGEN [Suspect]
     Active Substance: HUMAN IMMUNOGLOBULIN G
     Indication: Chronic inflammatory demyelinating polyradiculoneuropathy
     Dosage: 115 G, QOW(BI-WEEKLY (OVER 2 DAYS))
     Route: 042
     Dates: start: 20240102

REACTIONS (2)
  - Dehydration [Unknown]
  - Headache [Unknown]
